FAERS Safety Report 7408583-4 (Version None)
Quarter: 2011Q2

REPORT INFORMATION
  Report Type: 
  Country: None (occurrence: None)
  Receive Date: 20110412
  Receipt Date: 20110406
  Transmission Date: 20111010
  Serious: Yes (Hospitalization)
  Sender: FDA-Public Use
  Company Number: DE-PFIZER INC-2010026728

PATIENT
  Age: 73 Year
  Sex: Male

DRUGS (3)
  1. MARCUMAR [Concomitant]
  2. SUTENT [Suspect]
     Indication: METASTATIC RENAL CELL CARCINOMA
     Dosage: UNK
     Dates: start: 20091217
  3. SUTENT [Suspect]
     Dosage: 50 MG (DOSING NOT ACCORDING TO PROTOCOL)
     Dates: start: 20100128, end: 20100224

REACTIONS (1)
  - GASTROINTESTINAL HAEMORRHAGE [None]
